FAERS Safety Report 22815775 (Version 3)
Quarter: 2024Q1

REPORT INFORMATION
  Report Type: Spontaneous
  Country: DE (occurrence: DE)
  Receive Date: 20230811
  Receipt Date: 20240327
  Transmission Date: 20240409
  Serious: Yes (Other)
  Sender: FDA-Public Use
  Company Number: DE-BAXTER-2023BAX028249

PATIENT

DRUGS (32)
  1. CYCLOPHOSPHAMIDE [Suspect]
     Active Substance: CYCLOPHOSPHAMIDE
     Indication: Plasma cell myeloma refractory
     Dosage: UNK, FIRST LINE TREATMENT
     Route: 065
     Dates: start: 20110201, end: 20110701
  2. CYCLOPHOSPHAMIDE [Suspect]
     Active Substance: CYCLOPHOSPHAMIDE
     Dosage: UNK, FOURTH LINE TREATMENT
     Route: 065
     Dates: start: 20140201, end: 20141001
  3. CYCLOPHOSPHAMIDE [Suspect]
     Active Substance: CYCLOPHOSPHAMIDE
     Dosage: UNK, FOURTH LINE TREATMENT
     Route: 065
     Dates: start: 20141001
  4. CYCLOPHOSPHAMIDE [Suspect]
     Active Substance: CYCLOPHOSPHAMIDE
     Dosage: UNK
     Route: 065
     Dates: start: 20191101, end: 20211101
  5. CYCLOPHOSPHAMIDE [Suspect]
     Active Substance: CYCLOPHOSPHAMIDE
     Dosage: UNK
     Route: 065
     Dates: start: 20191101, end: 20221101
  6. DOXORUBICIN [Suspect]
     Active Substance: DOXORUBICIN
     Indication: Plasma cell myeloma refractory
     Dosage: UNK
     Route: 065
     Dates: start: 20211101, end: 20220201
  7. BORTEZOMIB [Suspect]
     Active Substance: BORTEZOMIB
     Indication: Plasma cell myeloma refractory
     Dosage: UNK, FOURTH LINE TREATMENT
     Route: 065
     Dates: start: 20140201, end: 20141001
  8. VELCADE [Suspect]
     Active Substance: BORTEZOMIB
     Indication: Plasma cell myeloma refractory
     Dosage: UNK, FIRST LINE TREATMENT
     Route: 065
     Dates: start: 20110201, end: 20110701
  9. VELCADE [Suspect]
     Active Substance: BORTEZOMIB
     Dosage: UNK, FOURTH LINE TREATMENT
     Route: 065
     Dates: start: 20141001
  10. VELCADE [Suspect]
     Active Substance: BORTEZOMIB
     Dosage: UNK, SEVENTH LINE TREATMENT
     Route: 065
     Dates: start: 20151201, end: 20161101
  11. VELCADE [Suspect]
     Active Substance: BORTEZOMIB
     Dosage: UNK
     Route: 065
     Dates: start: 20211101, end: 20220201
  12. DEXAMETHASONE [Suspect]
     Active Substance: DEXAMETHASONE
     Indication: Plasma cell myeloma refractory
     Dosage: UNK, FIRST LINE TREATMENT
     Route: 065
     Dates: start: 20110201, end: 20110701
  13. DEXAMETHASONE [Suspect]
     Active Substance: DEXAMETHASONE
     Dosage: UNK, FOURTH LINE TREATMENT
     Route: 065
     Dates: start: 20140201, end: 20141001
  14. DEXAMETHASONE [Suspect]
     Active Substance: DEXAMETHASONE
     Dosage: UNK, FOURTH LINE TREATMENT
     Route: 065
     Dates: start: 20141001
  15. DEXAMETHASONE [Suspect]
     Active Substance: DEXAMETHASONE
     Dosage: UNK, FIFTH LINE TREATMENT
     Route: 065
     Dates: start: 20150401, end: 20150901
  16. DEXAMETHASONE [Suspect]
     Active Substance: DEXAMETHASONE
     Dosage: UNK, SIXTH LINE TREATMENT
     Route: 065
     Dates: start: 20151001, end: 20151201
  17. DEXAMETHASONE [Suspect]
     Active Substance: DEXAMETHASONE
     Dosage: UNK, SEVENTH LINE TREATMENT
     Route: 065
     Dates: start: 20151201, end: 20161101
  18. DEXAMETHASONE [Suspect]
     Active Substance: DEXAMETHASONE
     Dosage: UNK
     Route: 065
     Dates: start: 20170101, end: 20171201
  19. DEXAMETHASONE [Suspect]
     Active Substance: DEXAMETHASONE
     Dosage: UNK
     Route: 065
     Dates: start: 20171201, end: 20190101
  20. DEXAMETHASONE [Suspect]
     Active Substance: DEXAMETHASONE
     Dosage: UNK
     Route: 065
     Dates: start: 20191101, end: 20221101
  21. MELPHALAN [Suspect]
     Active Substance: MELPHALAN
     Indication: Plasma cell myeloma refractory
     Dosage: UNK, SECOND LINE TREATMENT
     Route: 065
     Dates: start: 20110702, end: 20110703
  22. MELPHALAN [Suspect]
     Active Substance: MELPHALAN
     Dosage: UNK, THIRD LINE TREATMENT
     Route: 065
     Dates: start: 20111201, end: 20111202
  23. LENALIDOMIDE [Suspect]
     Active Substance: LENALIDOMIDE
     Indication: Plasma cell myeloma refractory
     Dosage: UNK, FIFTH LINE TREATMENT
     Route: 065
     Dates: start: 20150401, end: 20150901
  24. LENALIDOMIDE [Suspect]
     Active Substance: LENALIDOMIDE
     Dosage: UNK
     Route: 065
     Dates: start: 20171201, end: 20190101
  25. POMALIDOMIDE [Suspect]
     Active Substance: POMALIDOMIDE
     Indication: Plasma cell myeloma refractory
     Dosage: UNK, SIXTH LINE TREATMENT
     Route: 065
     Dates: start: 20151001, end: 20151201
  26. POMALIDOMIDE [Suspect]
     Active Substance: POMALIDOMIDE
     Dosage: UNK
     Route: 065
     Dates: start: 20191101, end: 20221101
  27. PANOBINOSTAT [Suspect]
     Active Substance: PANOBINOSTAT
     Indication: Plasma cell myeloma refractory
     Dosage: UNK
     Route: 065
  28. DARZALEX [Suspect]
     Active Substance: DARATUMUMAB
     Indication: Plasma cell myeloma refractory
     Dosage: UNK
     Route: 042
     Dates: start: 20170101, end: 20171201
  29. CARFILZOMIB [Suspect]
     Active Substance: CARFILZOMIB
     Indication: Plasma cell myeloma refractory
     Dosage: UNK
     Route: 065
     Dates: start: 20171201, end: 20190101
  30. VENETOCLAX [Suspect]
     Active Substance: VENETOCLAX
     Indication: Plasma cell myeloma refractory
     Dosage: UNK
     Route: 065
     Dates: start: 20201116, end: 20211111
  31. ABECMA [Suspect]
     Active Substance: IDECABTAGENE VICLEUCEL
     Indication: Plasma cell myeloma refractory
     Dosage: UNK (BCMA TARGETED CAR-T)
     Route: 065
     Dates: start: 20220227
  32. IDECABTAGENE VICLEUCEL [Suspect]
     Active Substance: IDECABTAGENE VICLEUCEL
     Indication: Plasma cell myeloma refractory
     Dosage: UNK (BCMA TARGETED CAR-T)
     Route: 065
     Dates: start: 20220227

REACTIONS (1)
  - Plasma cell myeloma [Unknown]
